FAERS Safety Report 4480418-1 (Version None)
Quarter: 2004Q4

REPORT INFORMATION
  Report Type: 
  Country: None (occurrence: None)
  Receive Date: 20041018
  Receipt Date: 20041006
  Transmission Date: 20050328
  Serious: Yes (Other)
  Sender: FDA-Public Use
  Company Number: 2004076191

PATIENT
  Sex: Female

DRUGS (2)
  1. ZANTAC 75 [Suspect]
     Dosage: 1-2X DAILY, ORAL
     Route: 048
     Dates: start: 19990101
  2. CELECOXIB (CELECOXIB) [Concomitant]

REACTIONS (1)
  - GASTRECTOMY PARTIAL [None]
